FAERS Safety Report 4598050-8 (Version None)
Quarter: 2005Q1

REPORT INFORMATION
  Report Type: 
  Country: None (occurrence: None)
  Receive Date: 20050207
  Receipt Date: 20041011
  Transmission Date: 20050727
  Serious: Yes (Hospitalization)
  Sender: FDA-Public Use
  Company Number: MEDI-0002304 (0)

PATIENT
  Sex: 0

DRUGS (1)
  1. ETHYOL [Suspect]
     Indication: ILL-DEFINED DISORDER

REACTIONS (1)
  - ANAPHYLACTIC REACTION [None]
